FAERS Safety Report 23788704 (Version 1)
Quarter: 2024Q2

REPORT INFORMATION
  Report Type: Spontaneous
  Country: RU (occurrence: None)
  Receive Date: 20240426
  Receipt Date: 20240426
  Transmission Date: 20240716
  Serious: Yes (Death)
  Sender: FDA-Public Use
  Company Number: RU-ROCHE-3549768

PATIENT
  Age: 51 Year
  Sex: Male

DRUGS (1)
  1. EMICIZUMAB [Suspect]
     Active Substance: EMICIZUMAB
     Indication: Factor VIII deficiency
     Route: 065

REACTIONS (1)
  - Cerebral haemorrhage [Fatal]
